FAERS Safety Report 22652948 (Version 1)
Quarter: 2023Q2

REPORT INFORMATION
  Report Type: Spontaneous
  Country: US (occurrence: US)
  Receive Date: 20230629
  Receipt Date: 20230629
  Transmission Date: 20230722
  Serious: Yes (Other)
  Sender: FDA-Public Use
  Company Number: US-REGENERON PHARMACEUTICALS, INC.-2023-082374

PATIENT
  Age: 86 Year
  Sex: Female

DRUGS (1)
  1. EYLEA [Suspect]
     Active Substance: AFLIBERCEPT
     Indication: Neovascular age-related macular degeneration
     Dosage: UNK, EVERY 6-8 WEEKS, INTO BOTH EYES, FORMULATION: UNKNOWN
     Dates: end: 202212

REACTIONS (4)
  - Atrial fibrillation [Unknown]
  - Visual impairment [Unknown]
  - Headache [Unknown]
  - Ocular hyperaemia [Unknown]

NARRATIVE: CASE EVENT DATE: 20230101
